FAERS Safety Report 13250348 (Version 1)
Quarter: 2017Q1

REPORT INFORMATION
  Report Type: Spontaneous
  Country: US (occurrence: US)
  Receive Date: 20170218
  Receipt Date: 20170218
  Transmission Date: 20170428
  Serious: No
  Sender: FDA-Public Use
  Company Number: US-TEVA-738797ACC

PATIENT
  Sex: Female

DRUGS (7)
  1. COPAXONE [Suspect]
     Active Substance: GLATIRAMER ACETATE
  2. FISH OIL [Concomitant]
     Active Substance: FISH OIL
  3. COPAXONE [Suspect]
     Active Substance: GLATIRAMER ACETATE
     Indication: MULTIPLE SCLEROSIS
     Route: 058
     Dates: start: 20160802
  4. MORPHINE [Concomitant]
     Active Substance: MORPHINE
  5. OXYTROL [Concomitant]
     Active Substance: OXYBUTYNIN
  6. CALCIUM [Concomitant]
     Active Substance: CALCIUM
  7. PAROXETINE. [Concomitant]
     Active Substance: PAROXETINE

REACTIONS (1)
  - Injection site pain [Not Recovered/Not Resolved]
